FAERS Safety Report 5977519-5 (Version None)
Quarter: 2008Q4

REPORT INFORMATION
  Report Type: 
  Country: None (occurrence: None)
  Receive Date: 20081201
  Receipt Date: 20081201
  Transmission Date: 20090506
  Serious: Yes (Other)
  Sender: FDA-Public Use
  Company Number: None

PATIENT
  Age: 48 Year
  Sex: Female
  Weight: 56.6996 kg

DRUGS (1)
  1. MUCINEX DM [Suspect]
     Indication: COUGH
     Dosage: 1 TABLET ONCE PO
     Route: 048
     Dates: start: 20081125, end: 20081125

REACTIONS (7)
  - CONFUSIONAL STATE [None]
  - HYPERVIGILANCE [None]
  - LOSS OF CONSCIOUSNESS [None]
  - MYDRIASIS [None]
  - RESPIRATORY RATE INCREASED [None]
  - RESTLESSNESS [None]
  - SYNCOPE [None]
